FAERS Safety Report 21039655 (Version 1)
Quarter: 2022Q3

REPORT INFORMATION
  Report Type: Spontaneous
  Country: BR (occurrence: BR)
  Receive Date: 20220704
  Receipt Date: 20220704
  Transmission Date: 20221027
  Serious: Yes (Hospitalization, Other)
  Sender: FDA-Public Use
  Company Number: BR-JNJFOC-20220701437

PATIENT

DRUGS (2)
  1. HALDOL [Suspect]
     Active Substance: HALOPERIDOL
     Indication: Headache
     Route: 048
  2. HALDOL [Suspect]
     Active Substance: HALOPERIDOL
     Indication: Abdominal pain

REACTIONS (6)
  - Syncope [Recovered/Resolved]
  - Malaise [Recovered/Resolved]
  - Drug diversion [Unknown]
  - Sedation [Recovered/Resolved]
  - Hypersensitivity [Recovered/Resolved]
  - Intentional product misuse [Unknown]
